FAERS Safety Report 25168498 (Version 1)
Quarter: 2025Q2

REPORT INFORMATION
  Report Type: Spontaneous
  Country: DE (occurrence: DE)
  Receive Date: 20250407
  Receipt Date: 20250407
  Transmission Date: 20250716
  Serious: Yes (Death, Life-Threatening, Hospitalization)
  Sender: MYLAN
  Company Number: DE-DCGMA-24204037

PATIENT
  Age: 89 Year
  Sex: Female

DRUGS (8)
  1. METHOTREXATE [Suspect]
     Active Substance: METHOTREXATE
     Indication: Rheumatic disorder
     Dosage: 15 MILLIGRAM, QW (DAILY DOSE: 15 MG EVERY 7 DAYS)
     Dates: start: 20240827
  2. METHOTREXATE [Suspect]
     Active Substance: METHOTREXATE
     Dosage: 15 MILLIGRAM, QW (DAILY DOSE: 15 MG EVERY 7 DAYS)
     Route: 058
     Dates: start: 20240827
  3. METHOTREXATE [Suspect]
     Active Substance: METHOTREXATE
     Dosage: 15 MILLIGRAM, QW (DAILY DOSE: 15 MG EVERY 7 DAYS)
     Route: 058
     Dates: start: 20240827
  4. METHOTREXATE [Suspect]
     Active Substance: METHOTREXATE
     Dosage: 15 MILLIGRAM, QW (DAILY DOSE: 15 MG EVERY 7 DAYS)
     Dates: start: 20240827
  5. METAMIZOL [Suspect]
     Active Substance: METAMIZOLE SODIUM
     Indication: Arthralgia
     Dates: start: 20240827, end: 20240926
  6. METAMIZOL [Suspect]
     Active Substance: METAMIZOLE SODIUM
     Route: 048
     Dates: start: 20240827, end: 20240926
  7. METAMIZOL [Suspect]
     Active Substance: METAMIZOLE SODIUM
     Route: 048
     Dates: start: 20240827, end: 20240926
  8. METAMIZOL [Suspect]
     Active Substance: METAMIZOLE SODIUM
     Dates: start: 20240827, end: 20240926

REACTIONS (1)
  - Pancytopenia [Fatal]

NARRATIVE: CASE EVENT DATE: 20240926
